FAERS Safety Report 25622705 (Version 4)
Quarter: 2025Q3

REPORT INFORMATION
  Report Type: Spontaneous
  Country: US (occurrence: US)
  Receive Date: 20250730
  Receipt Date: 20250902
  Transmission Date: 20251020
  Serious: No
  Sender: PFIZER
  Company Number: US-PFIZER INC-202500152330

PATIENT
  Age: 10 Year
  Sex: Female

DRUGS (1)
  1. BICILLIN L-A [Suspect]
     Active Substance: PENICILLIN G BENZATHINE
     Dates: start: 202507

REACTIONS (1)
  - Recalled product administered [Unknown]

NARRATIVE: CASE EVENT DATE: 20250701
